FAERS Safety Report 13921507 (Version 1)
Quarter: 2017Q3

REPORT INFORMATION
  Report Type: Spontaneous
  Country: US (occurrence: US)
  Receive Date: 20170830
  Receipt Date: 20170830
  Transmission Date: 20171127
  Serious: Yes (Other)
  Sender: FDA-Public Use
  Company Number: US-PETNET SOLUTIONS, INC.-2025309

PATIENT
  Age: 44 Year
  Sex: Female
  Weight: 65.46 kg

DRUGS (1)
  1. FLUDEOXYGLUCOSE F-18. [Suspect]
     Active Substance: FLUDEOXYGLUCOSE F-18
     Indication: POSITRON EMISSION TOMOGRAM
     Route: 040
     Dates: start: 20170816, end: 20170816

REACTIONS (1)
  - Syncope [Recovered/Resolved]

NARRATIVE: CASE EVENT DATE: 20170816
